FAERS Safety Report 14361290 (Version 7)
Quarter: 2018Q4

REPORT INFORMATION
  Report Type: Spontaneous
  Country: US (occurrence: US)
  Receive Date: 20180108
  Receipt Date: 20181114
  Transmission Date: 20190204
  Serious: No
  Sender: FDA-Public Use
  Company Number: US-BRISTOL-MYERS SQUIBB COMPANY-BMS-2017-119988

PATIENT
  Sex: Female
  Weight: 88.44 kg

DRUGS (3)
  1. ORENCIA [Suspect]
     Active Substance: ABATACEPT
     Indication: RHEUMATOID ARTHRITIS
     Dosage: 125 MG, QWK
     Route: 058
     Dates: start: 201710
  2. ORENCIA [Suspect]
     Active Substance: ABATACEPT
     Indication: PSORIASIS
     Route: 065
  3. ORENCIA [Suspect]
     Active Substance: ABATACEPT
     Indication: ARTHRALGIA
     Route: 065

REACTIONS (6)
  - Urinary tract infection [Unknown]
  - Psoriasis [Unknown]
  - Influenza [Recovering/Resolving]
  - Sinusitis [Unknown]
  - General physical health deterioration [Unknown]
  - Pain [Unknown]
